FAERS Safety Report 6635384-7 (Version None)
Quarter: 2010Q1

REPORT INFORMATION
  Report Type: 
  Country: None (occurrence: None)
  Receive Date: 20100311
  Receipt Date: 20100311
  Transmission Date: 20100710
  Serious: Yes (Other)
  Sender: FDA-Public Use
  Company Number: None

PATIENT
  Sex: Female
  Weight: 68.0396 kg

DRUGS (2)
  1. CYMBALTA [Suspect]
     Indication: MIGRAINE
     Dosage: 60MG 1 PER DAY PO
     Route: 048
     Dates: start: 20041001, end: 20091201
  2. CYMBALTA [Suspect]
     Indication: ANXIETY
     Dosage: 30 MG 1 PER DAY PO
     Route: 048
     Dates: start: 20091201

REACTIONS (10)
  - ANXIETY [None]
  - DISTURBANCE IN ATTENTION [None]
  - DRUG DEPENDENCE [None]
  - FEELING ABNORMAL [None]
  - HEADACHE [None]
  - HOT FLUSH [None]
  - MALAISE [None]
  - PARAESTHESIA [None]
  - PARANOIA [None]
  - WITHDRAWAL SYNDROME [None]
